FAERS Safety Report 15077625 (Version 1)
Quarter: 2018Q2

REPORT INFORMATION
  Report Type: Report from Study
  Country: None (occurrence: JP)
  Receive Date: 20180627
  Receipt Date: 20180627
  Transmission Date: 20180711
  Serious: Yes (Hospitalization)
  Sender: FDA-Public Use
  Company Number: JP-ABBVIE-18P-087-2393723-00

PATIENT
  Age: 76 Year
  Sex: Female
  Weight: 43 kg

DRUGS (25)
  1. VENETOCLAX. [Suspect]
     Active Substance: VENETOCLAX
     Dosage: DAYS 1-28 OF  A 28 DAY CYCLE
     Route: 048
     Dates: start: 20180605
  2. FAMOTIDINE. [Concomitant]
     Active Substance: FAMOTIDINE
     Indication: PROPHYLAXIS AGAINST GASTROINTESTINAL ULCER
     Route: 048
     Dates: start: 201411
  3. SENNOSIDE [Concomitant]
     Active Substance: SENNOSIDES
     Indication: CONSTIPATION
     Route: 048
     Dates: start: 20170830
  4. VENETOCLAX. [Suspect]
     Active Substance: VENETOCLAX
     Dosage: DAYS 1-28 OF  A 28 DAY CYCLE
     Route: 048
     Dates: start: 20170831, end: 20170924
  5. FEBURIC [Concomitant]
     Active Substance: FEBUXOSTAT
     Indication: PROPHYLAXIS
  6. LEVOFLOXACIN. [Concomitant]
     Active Substance: LEVOFLOXACIN
     Route: 048
     Dates: start: 20180308, end: 20180402
  7. VENETOCLAX. [Suspect]
     Active Substance: VENETOCLAX
     Dosage: DAYS 1-28 OF  A 28 DAY CYCLE
     Route: 048
     Dates: start: 20180118, end: 20180214
  8. LEVOFLOXACIN. [Concomitant]
     Active Substance: LEVOFLOXACIN
     Route: 048
     Dates: start: 20180501, end: 20180525
  9. VENETOCLAX. [Suspect]
     Active Substance: VENETOCLAX
     Dosage: DAYS 1-28 OF  A 28 DAY CYCLE
     Route: 048
     Dates: start: 20170829, end: 20170829
  10. VENETOCLAX. [Suspect]
     Active Substance: VENETOCLAX
     Dosage: DAYS 1-28 OF  A 28 DAY CYCLE
     Route: 048
     Dates: start: 20180227, end: 20180319
  11. FEBURIC [Concomitant]
     Active Substance: FEBUXOSTAT
     Indication: TUMOUR LYSIS SYNDROME
     Route: 048
     Dates: start: 20170822, end: 20170831
  12. \SOLDEM 6 [Concomitant]
     Indication: PROPHYLAXIS
     Route: 042
     Dates: start: 20170828, end: 20170901
  13. VENETOCLAX. [Suspect]
     Active Substance: VENETOCLAX
     Dosage: DAYS 1-28 OF  A 28 DAY CYCLE
     Route: 048
     Dates: start: 20171016, end: 20171112
  14. LEVOFLOXACIN. [Concomitant]
     Active Substance: LEVOFLOXACIN
     Route: 048
     Dates: start: 20171209, end: 20180104
  15. METHYCOBAL [Concomitant]
     Active Substance: METHYLCOBALAMIN
     Indication: VITAMIN B12 DEFICIENCY
     Route: 048
     Dates: start: 20180605
  16. VENETOCLAX. [Suspect]
     Active Substance: VENETOCLAX
     Indication: ACUTE MYELOID LEUKAEMIA
     Dosage: DAYS 1-28 OF  A 28 DAY CYCLE
     Route: 048
     Dates: start: 20170828, end: 20170828
  17. VENETOCLAX. [Suspect]
     Active Substance: VENETOCLAX
     Dosage: DAYS 1-28 OF  A 28 DAY CYCLE
     Route: 048
     Dates: start: 20180418, end: 20180508
  18. LEVOFLOXACIN. [Concomitant]
     Active Substance: LEVOFLOXACIN
     Indication: INFECTION PROPHYLAXIS
     Route: 048
     Dates: start: 20170828, end: 20171018
  19. DERMOSOL-G [Concomitant]
     Indication: DERMATITIS CONTACT
     Dosage: FINGERTIP UNIT
     Route: 003
     Dates: start: 20170828
  20. VENETOCLAX. [Suspect]
     Active Substance: VENETOCLAX
     Dosage: DAYS 1-28 OF  A 28 DAY CYCLE
     Route: 048
     Dates: start: 20170830, end: 20170830
  21. CYTARABINE. [Suspect]
     Active Substance: CYTARABINE
     Indication: ACUTE MYELOID LEUKAEMIA
     Dosage: DAYS 1-10 OF 28 DAY CYCLE
     Route: 058
     Dates: start: 20170828
  22. LEVOFLOXACIN. [Concomitant]
     Active Substance: LEVOFLOXACIN
     Route: 048
     Dates: start: 20171103, end: 20171122
  23. VENETOCLAX. [Suspect]
     Active Substance: VENETOCLAX
     Dosage: DAYS 1-28 OF  A 28 DAY CYCLE
     Route: 048
     Dates: start: 20171129, end: 20171226
  24. \SOLDEM 6 [Concomitant]
     Indication: TUMOUR LYSIS SYNDROME
     Route: 042
     Dates: start: 20170822, end: 20170827
  25. LEVOFLOXACIN. [Concomitant]
     Active Substance: LEVOFLOXACIN
     Route: 048
     Dates: start: 20180203, end: 20180223

REACTIONS (2)
  - Neutrophil count decreased [Not Recovered/Not Resolved]
  - White blood cell count decreased [Not Recovered/Not Resolved]

NARRATIVE: CASE EVENT DATE: 20180619
